FAERS Safety Report 17837146 (Version 1)
Quarter: 2020Q2

REPORT INFORMATION
  Report Type: Spontaneous
  Country: JP (occurrence: JP)
  Receive Date: 20200528
  Receipt Date: 20200528
  Transmission Date: 20200714
  Serious: Yes (Other)
  Sender: FDA-Public Use
  Company Number: JP-PFIZER INC-2020206833

PATIENT

DRUGS (1)
  1. CORTRIL [Suspect]
     Active Substance: HYDROCORTISONE
     Indication: BRAIN NEOPLASM
     Dosage: 15 MG, DAILY, 10 MG IN THE MORNING AND 5 MG IN THE EVENING
     Route: 048

REACTIONS (5)
  - Enterocolitis haemorrhagic [Recovering/Resolving]
  - Adrenocortical insufficiency acute [Recovering/Resolving]
  - Product use in unapproved indication [Unknown]
  - Blood pressure decreased [Recovering/Resolving]
  - Off label use [Unknown]
